FAERS Safety Report 5738419-9 (Version None)
Quarter: 2008Q2

REPORT INFORMATION
  Report Type: 
  Country: None (occurrence: None)
  Receive Date: 20080513
  Receipt Date: 20080428
  Transmission Date: 20081010
  Serious: Yes (Hospitalization, Other)
  Sender: FDA-Public Use
  Company Number: 027517

PATIENT
  Age: 80 Year
  Sex: Male

DRUGS (9)
  1. THEOPHYLLINE(THEOPHYLLINE) EXTENDED RELEASE TABLET, 200MG [Suspect]
     Indication: ASTHMA
     Dosage: 200 MG, TID
  2. THEOPHYLLINE(THEOPHYLLINE) EXTENDED RELEASE TABLET, 200MG [Suspect]
     Indication: CHRONIC OBSTRUCTIVE PULMONARY DISEASE
     Dosage: 200 MG, TID
  3. DYAZIDE [Concomitant]
  4. AZATHIOPRINE [Concomitant]
  5. MECLIZINE [Concomitant]
  6. ALBUTEROL [Concomitant]
  7. LEVOFLOXACIN [Concomitant]
  8. MORPHINE [Concomitant]
  9. METRONIDAZOLE HCL [Concomitant]

REACTIONS (22)
  - ATRIAL TACHYCARDIA [None]
  - CONFUSIONAL STATE [None]
  - DELIRIUM [None]
  - DIABETIC KETOACIDOSIS [None]
  - DISORIENTATION [None]
  - DRUG LEVEL INCREASED [None]
  - DRUG TOXICITY [None]
  - FALL [None]
  - FEMORAL NECK FRACTURE [None]
  - HIP FRACTURE [None]
  - HYPOKALAEMIA [None]
  - ILEUS [None]
  - INTESTINAL ISCHAEMIA [None]
  - KETOACIDOSIS [None]
  - LACTIC ACIDOSIS [None]
  - LOBAR PNEUMONIA [None]
  - METABOLIC ACIDOSIS [None]
  - RESPIRATORY ALKALOSIS [None]
  - SEPSIS [None]
  - SHIFT TO THE LEFT [None]
  - SKIN TURGOR DECREASED [None]
  - STARVATION [None]
